FAERS Safety Report 9169634 (Version 3)
Quarter: 2013Q2

REPORT INFORMATION
  Report Type: Spontaneous
  Country: US (occurrence: US)
  Receive Date: 20130318
  Receipt Date: 20130409
  Transmission Date: 20140414
  Serious: No
  Sender: FDA-Public Use
  Company Number: US-ROXANE LABORATORIES, INC.-2013-RO-00370RO

PATIENT
  Age: 58 Year
  Sex: Female
  Weight: 66 kg

DRUGS (1)
  1. TINIDAZOLE [Suspect]
     Indication: GENITAL INFECTION FEMALE
     Dosage: 2000 MG
     Route: 048
     Dates: start: 20130222, end: 20130223

REACTIONS (3)
  - Drug ineffective [Recovered/Resolved]
  - Tongue discolouration [Recovered/Resolved]
  - Product quality issue [Recovered/Resolved]
